FAERS Safety Report 17927998 (Version 2)
Quarter: 2020Q2

REPORT INFORMATION
  Report Type: Spontaneous
  Country: FR (occurrence: FR)
  Receive Date: 20200623
  Receipt Date: 20200630
  Transmission Date: 20200714
  Serious: Yes (Other)
  Sender: FDA-Public Use
  Company Number: FR-TEVA-2020-FR-1789698

PATIENT
  Age: 40 Year
  Sex: Male

DRUGS (3)
  1. CLARITHROMYCINE [Suspect]
     Active Substance: CLARITHROMYCIN
     Indication: MYCOBACTERIAL INFECTION
     Dosage: 1000 MG
     Route: 048
     Dates: start: 20200423, end: 20200522
  2. ANSATIPINE 150 MG, GELULE [Suspect]
     Active Substance: RIFABUTIN
     Indication: MYCOBACTERIAL INFECTION
     Route: 048
     Dates: start: 20200423, end: 20200522
  3. DEXAMBUTOL 500 MG, COMPRIME PELLICULE [Suspect]
     Active Substance: ETHAMBUTOL HYDROCHLORIDE
     Indication: MYCOBACTERIAL INFECTION
     Dosage: 1000 MG
     Route: 048
     Dates: start: 20200423, end: 20200522

REACTIONS (1)
  - Hepatocellular injury [Recovering/Resolving]

NARRATIVE: CASE EVENT DATE: 20200513
